FAERS Safety Report 5386519-8 (Version None)
Quarter: 2007Q3

REPORT INFORMATION
  Report Type: 
  Country: None (occurrence: None)
  Receive Date: 20070713
  Receipt Date: 20070705
  Transmission Date: 20080115
  Serious: Yes (Hospitalization)
  Sender: FDA-Public Use
  Company Number: DE-GENENTECH-243729

PATIENT
  Sex: Female

DRUGS (2)
  1. RAPTIVA [Suspect]
     Indication: PSORIASIS
     Dosage: 1 MG/KG, 1/WEEK
     Route: 058
     Dates: start: 20070401, end: 20070601
  2. METHOTREXATE [Concomitant]

REACTIONS (3)
  - MOLLUSCUM CONTAGIOSUM [None]
  - OEDEMA PERIPHERAL [None]
  - PRURITUS [None]
